FAERS Safety Report 6795699-9 (Version None)
Quarter: 2010Q2

REPORT INFORMATION
  Report Type: 
  Country: None (occurrence: None)
  Receive Date: 20100625
  Receipt Date: 20100615
  Transmission Date: 20101027
  Serious: Yes (Hospitalization)
  Sender: FDA-Public Use
  Company Number: FR-ABBOTT-10P-056-0652390-00

PATIENT
  Sex: Female

DRUGS (15)
  1. SEVOFLURANE [Suspect]
     Indication: ANAESTHESIA
     Route: 055
     Dates: start: 20100517, end: 20100517
  2. PROPOFOL [Suspect]
     Indication: ANAESTHESIA
     Dosage: 1%
     Route: 042
     Dates: start: 20100517, end: 20100517
  3. ATRACURIUM HOSPIRA [Suspect]
     Indication: ANAESTHESIA
     Route: 042
     Dates: start: 20100517, end: 20100517
  4. SUFENTA PRESERVATIVE FREE [Suspect]
     Indication: ANAESTHESIA
     Route: 042
     Dates: start: 20100517, end: 20100517
  5. NEURONTIN [Suspect]
     Indication: DRUG USE FOR UNKNOWN INDICATION
     Route: 048
     Dates: start: 20100517, end: 20100517
  6. POVIDONE IODINE [Suspect]
     Indication: DRUG USE FOR UNKNOWN INDICATION
     Dosage: 10%
     Route: 061
     Dates: start: 20100516, end: 20100517
  7. NAROPIN [Suspect]
     Indication: ANAESTHESIA
     Dates: start: 20100517, end: 20100517
  8. LOVENOX [Suspect]
     Indication: DRUG USE FOR UNKNOWN INDICATION
     Dosage: 4000 IU/0.4 ML
     Route: 058
     Dates: start: 20100517, end: 20100518
  9. KETAMINE HCL [Suspect]
     Indication: ANAESTHESIA
     Route: 042
     Dates: start: 20100517, end: 20100517
  10. AUGMENTIN '125' [Suspect]
     Indication: DRUG USE FOR UNKNOWN INDICATION
     Dosage: 2G/200MG
     Route: 042
     Dates: start: 20100517, end: 20100517
  11. DROPERIDOL [Suspect]
     Indication: DRUG USE FOR UNKNOWN INDICATION
     Route: 042
     Dates: start: 20100517, end: 20100517
  12. DESOGESTREL [Concomitant]
     Indication: DRUG USE FOR UNKNOWN INDICATION
  13. FLURBIPROFEN [Concomitant]
     Indication: DRUG USE FOR UNKNOWN INDICATION
  14. DOXYLAMINE SUCCINATE [Concomitant]
     Indication: DRUG USE FOR UNKNOWN INDICATION
  15. PARACETAMOL [Concomitant]
     Indication: DRUG USE FOR UNKNOWN INDICATION

REACTIONS (2)
  - HAEMATURIA [None]
  - RENAL FAILURE ACUTE [None]
